FAERS Safety Report 5098014-4 (Version None)
Quarter: 2006Q3

REPORT INFORMATION
  Report Type: 
  Country: None (occurrence: None)
  Receive Date: 20060905
  Receipt Date: 20060822
  Transmission Date: 20061208
  Serious: Yes (Death, Hospitalization, Other)
  Sender: FDA-Public Use
  Company Number: CLOF-10237

PATIENT
  Age: 72 Year
  Sex: Female
  Weight: 51.2 kg

DRUGS (27)
  1. CLOFARABINE [Suspect]
     Indication: ACUTE LYMPHOCYTIC LEUKAEMIA
     Dosage: 40 MG/M2 QD X 3 IV
     Route: 042
     Dates: start: 20060428, end: 20060430
  2. CYCLOPHOSPHAMIDE [Suspect]
     Indication: ACUTE LYMPHOCYTIC LEUKAEMIA
     Dosage: 200 MG/M2 Q12HR IV
     Route: 042
     Dates: start: 20060427, end: 20060501
  3. CYCLOPHOSPHAMIDE [Suspect]
     Indication: ACUTE LYMPHOCYTIC LEUKAEMIA
     Dosage: 300 MG/M2 QD X 3 IV
     Route: 042
     Dates: start: 20060501, end: 20060501
  4. BACTRIM [Suspect]
     Indication: DRUG USE FOR UNKNOWN INDICATION
     Dates: end: 20060101
  5. VALTREX [Suspect]
     Indication: DRUG USE FOR UNKNOWN INDICATION
     Dosage: 500 MG QD PO
     Route: 048
     Dates: end: 20060101
  6. ZOSYN [Suspect]
     Indication: DRUG USE FOR UNKNOWN INDICATION
     Dates: start: 20060101, end: 20060101
  7. MESNA [Suspect]
     Indication: DRUG USE FOR UNKNOWN INDICATION
     Dosage: 600 MG/M2 QD IV
     Route: 042
     Dates: start: 20060428, end: 20060430
  8. PIPERACILLIN [Concomitant]
  9. FOLTX [Concomitant]
  10. VALTREX [Concomitant]
  11. PROTONIX [Concomitant]
  12. SYNTHROID [Concomitant]
  13. PROZAC [Concomitant]
  14. DIOVAN [Concomitant]
  15. MAGNESIUM OXIDE [Concomitant]
  16. K-DUR 10 [Concomitant]
  17. DARVON [Concomitant]
  18. ASCORBIC ACID [Concomitant]
  19. CENTRUM SILVER [Concomitant]
  20. EPOGEN [Concomitant]
  21. PHENARGAN [Concomitant]
  22. XANAX [Concomitant]
  23. ACTONEL [Concomitant]
  24. 0S-CAL [Concomitant]
  25. ZOFRAN [Concomitant]
  26. ATIVAN [Concomitant]
  27. ULTRAM [Concomitant]

REACTIONS (12)
  - ACUTE LYMPHOCYTIC LEUKAEMIA RECURRENT [None]
  - BILE DUCT STONE [None]
  - DIARRHOEA [None]
  - HAEMOLYTIC URAEMIC SYNDROME [None]
  - ILL-DEFINED DISORDER [None]
  - INFECTION [None]
  - MALNUTRITION [None]
  - MULTI-ORGAN FAILURE [None]
  - NEPHRITIS INTERSTITIAL [None]
  - NEPHROPATHY TOXIC [None]
  - RECTAL HAEMORRHAGE [None]
  - RENAL FAILURE ACUTE [None]
